FAERS Safety Report 9633542 (Version 1)
Quarter: 2013Q4

REPORT INFORMATION
  Report Type: Report from Study
  Country: AR (occurrence: AR)
  Receive Date: 20131021
  Receipt Date: 20131021
  Transmission Date: 20140711
  Serious: Yes (Other)
  Sender: FDA-Public Use
  Company Number: PHHY2013AR118233

PATIENT
  Sex: Male

DRUGS (1)
  1. EXFORGE D [Suspect]
     Indication: HYPERTENSION
     Dosage: 1 DF (UKN), PER DAY
     Route: 048
     Dates: end: 20131017

REACTIONS (3)
  - Polymyositis [Not Recovered/Not Resolved]
  - Pain [Not Recovered/Not Resolved]
  - Joint swelling [Unknown]
